FAERS Safety Report 19946779 (Version 1)
Quarter: 2021Q4

REPORT INFORMATION
  Report Type: Spontaneous
  Country: IN (occurrence: IN)
  Receive Date: 20211013
  Receipt Date: 20211013
  Transmission Date: 20220303
  Serious: Yes (Hospitalization, Other)
  Sender: FDA-Public Use
  Company Number: IN-EDENBRIDGE PHARMACEUTICALS, LLC-IN-2021EDE000069

PATIENT
  Age: 6 Year
  Sex: Female
  Weight: 20.5 kg

DRUGS (1)
  1. IVERMECTIN [Suspect]
     Active Substance: IVERMECTIN
     Indication: Acarodermatitis
     Dosage: 60 ML OF 1% W/V (600 MG)
     Route: 048

REACTIONS (8)
  - Encephalopathy [Recovered/Resolved]
  - Shock [Recovered/Resolved]
  - Pneumonia aspiration [Recovered/Resolved]
  - Respiratory failure [Recovered/Resolved]
  - Coma [Recovered/Resolved]
  - Toxicity to various agents [Recovered/Resolved]
  - Accidental overdose [Recovered/Resolved]
  - Product use in unapproved indication [Unknown]
